FAERS Safety Report 6926463-5 (Version None)
Quarter: 2010Q3

REPORT INFORMATION
  Report Type: 
  Country: None (occurrence: None)
  Receive Date: 20100816
  Receipt Date: 20100712
  Transmission Date: 20110219
  Serious: No
  Sender: FDA-Public Use
  Company Number: US-BAYER-201021759NA

PATIENT
  Sex: Female

DRUGS (1)
  1. BETASERON [Suspect]
     Indication: ACCIDENTAL EXPOSURE
     Dates: start: 20100505, end: 20100505

REACTIONS (1)
  - NO ADVERSE EVENT [None]
